FAERS Safety Report 5488994-7 (Version None)
Quarter: 2007Q4

REPORT INFORMATION
  Report Type: 
  Country: None (occurrence: None)
  Receive Date: 20071016
  Receipt Date: 20071001
  Transmission Date: 20080405
  Serious: Yes (Other)
  Sender: FDA-Public Use
  Company Number: 162471ISR

PATIENT
  Age: 38 Year
  Sex: Male

DRUGS (1)
  1. FLUOXETINE [Suspect]
     Indication: SYSTEMIC SCLEROSIS

REACTIONS (6)
  - ANAEMIA [None]
  - ANGIOPATHY [None]
  - CYANOSIS [None]
  - GANGRENE [None]
  - ISCHAEMIA [None]
  - SYSTEMIC SCLEROSIS [None]
